FAERS Safety Report 5495782-4 (Version None)
Quarter: 2007Q4

REPORT INFORMATION
  Report Type: 
  Country: None (occurrence: None)
  Receive Date: 20071025
  Receipt Date: 20061110
  Transmission Date: 20080405
  Serious: No
  Sender: FDA-Public Use
  Company Number: A0624378A

PATIENT
  Age: 71 Year
  Sex: Female
  Weight: 47.7 kg

DRUGS (7)
  1. ADVAIR DISKUS 100/50 [Suspect]
     Indication: CHRONIC OBSTRUCTIVE PULMONARY DISEASE
     Dosage: 1PUFF TWICE PER DAY
     Route: 055
     Dates: start: 20060701
  2. ALBUTEROL [Concomitant]
     Route: 055
  3. IPRATROPIUM BROMIDE [Concomitant]
  4. SPIRIVA [Concomitant]
  5. OXYGEN [Concomitant]
  6. IPRATROPIUM BROMIDE [Concomitant]
     Route: 055
  7. ALBUTEROL [Concomitant]
     Route: 055

REACTIONS (4)
  - CHRONIC OBSTRUCTIVE PULMONARY DISEASE [None]
  - DYSPHONIA [None]
  - DYSPNOEA [None]
  - RESPIRATORY DISORDER [None]
